FAERS Safety Report 24560479 (Version 1)
Quarter: 2024Q4

REPORT INFORMATION
  Report Type: Spontaneous
  Country: US (occurrence: None)
  Receive Date: 20241028
  Receipt Date: 20241028
  Transmission Date: 20250115
  Serious: Yes (Hospitalization)
  Sender: Public
  Company Number: None

PATIENT
  Age: 73 Year
  Sex: Male
  Weight: 109 kg

DRUGS (2)
  1. APIXABAN [Suspect]
     Active Substance: APIXABAN
     Indication: Vascular operation
     Dosage: FREQUENCY : TWICE A DAY;?
     Route: 048
  2. UNSPECIFIED INGREDIENT [Suspect]
     Active Substance: UNSPECIFIED INGREDIENT

REACTIONS (4)
  - Deep vein thrombosis [None]
  - Cardiac ventricular thrombosis [None]
  - Bacteraemia [None]
  - Ischaemic stroke [None]

NARRATIVE: CASE EVENT DATE: 20240621
